FAERS Safety Report 16681704 (Version 1)
Quarter: 2019Q3

REPORT INFORMATION
  Report Type: Spontaneous
  Country: SE (occurrence: SE)
  Receive Date: 20190808
  Receipt Date: 20190808
  Transmission Date: 20191004
  Serious: Yes (Life-Threatening, Hospitalization, Disabling)
  Sender: FDA-Public Use
  Company Number: SE-AUROBINDO-AUR-APL-2019-052187

PATIENT

DRUGS (15)
  1. OLANZAPINE. [Suspect]
     Active Substance: OLANZAPINE
     Dosage: UNK
     Route: 065
     Dates: start: 20161225, end: 20161228
  2. ABILIFY [Concomitant]
     Active Substance: ARIPIPRAZOLE
     Dosage: UNK
     Route: 065
     Dates: start: 20161221, end: 2019
  3. MELATONIN [Concomitant]
     Active Substance: MELATONIN
     Indication: PRODUCT USED FOR UNKNOWN INDICATION
     Dosage: 5 MILLIGRAM, ONCE A DAY
     Route: 065
     Dates: start: 20160628, end: 20160703
  4. RISPERIDONE. [Concomitant]
     Active Substance: RISPERIDONE
     Indication: PRODUCT USED FOR UNKNOWN INDICATION
     Dosage: UNK
     Route: 065
     Dates: start: 20160628, end: 20160703
  5. OLANZAPINE. [Suspect]
     Active Substance: OLANZAPINE
     Dosage: 1, 1 AS NECESSARY, F?R INSATT EXTRA 2,5 MG OLANZAPIN ATT TA VID BEHOV
     Dates: start: 20160703
  6. OLANZAPINE. [Suspect]
     Active Substance: OLANZAPINE
     Dosage: UNK
     Route: 065
     Dates: start: 20161229, end: 20170102
  7. THERALEN [Concomitant]
     Active Substance: TRIMEPRAZINE
     Indication: PRODUCT USED FOR UNKNOWN INDICATION
     Dosage: 0.25 MILLILITER, 1 AS NECESSARY, MAX 1 ML PER 24 HOURS
     Route: 065
  8. OLANZAPINE. [Suspect]
     Active Substance: OLANZAPINE
     Dosage: 2.5 MILLIGRAM, AS NECESSARY PRESCRIBED EXTRA
     Route: 065
     Dates: start: 20170103, end: 20170129
  9. ABILIFY [Concomitant]
     Active Substance: ARIPIPRAZOLE
     Indication: PRODUCT USED FOR UNKNOWN INDICATION
     Dosage: UNK
     Route: 065
     Dates: start: 20160620, end: 20161220
  10. OLANZAPINE. [Suspect]
     Active Substance: OLANZAPINE
     Dosage: UNK
     Route: 065
     Dates: start: 20170103, end: 20170129
  11. STESOLID [Concomitant]
     Active Substance: DIAZEPAM
     Indication: PRODUCT USED FOR UNKNOWN INDICATION
     Dosage: 5 MILLIGRAM, 1 TABLET IF NEEDED A MAXIMUM 2 TABLETS PER DAY
     Route: 065
  12. OLANZAPINE. [Suspect]
     Active Substance: OLANZAPINE
     Indication: PSYCHOTIC SYMPTOM
     Dosage: UNK
     Route: 065
     Dates: start: 20160702, end: 20161224
  13. NOZINAN [Concomitant]
     Active Substance: LEVOMEPROMAZINE
     Indication: PRODUCT USED FOR UNKNOWN INDICATION
     Dosage: UNK
     Route: 065
     Dates: start: 20160620, end: 20160701
  14. ABILIFY [Concomitant]
     Active Substance: ARIPIPRAZOLE
     Dosage: UNK
     Route: 065
     Dates: start: 2019
  15. NOZINAN [Concomitant]
     Active Substance: LEVOMEPROMAZINE
     Dosage: UNK
     Route: 065
     Dates: start: 20160702, end: 20160703

REACTIONS (9)
  - Mydriasis [Recovered/Resolved with Sequelae]
  - Product prescribing error [Recovered/Resolved with Sequelae]
  - Product administered to patient of inappropriate age [Recovered/Resolved with Sequelae]
  - Weight increased [Recovered/Resolved]
  - Musculoskeletal stiffness [Recovered/Resolved with Sequelae]
  - Confusional state [Recovered/Resolved with Sequelae]
  - Posture abnormal [Recovered/Resolved with Sequelae]
  - Back disorder [Recovered/Resolved with Sequelae]
  - Staring [Recovered/Resolved with Sequelae]

NARRATIVE: CASE EVENT DATE: 201607
